FAERS Safety Report 8333528-2 (Version None)
Quarter: 2012Q2

REPORT INFORMATION
  Report Type: 
  Country: None (occurrence: None)
  Receive Date: 20120503
  Receipt Date: 20120423
  Transmission Date: 20120825
  Serious: Yes (Hospitalization)
  Sender: FDA-Public Use
  Company Number: US-BAYER-2011-112538

PATIENT
  Age: 31 Year
  Sex: Female
  Weight: 69.841 kg

DRUGS (4)
  1. YASMIN [Suspect]
     Indication: DYSMENORRHOEA
  2. YASMIN [Suspect]
     Indication: CONTRACEPTION
     Dosage: UNK
     Dates: start: 20040101, end: 20060101
  3. PROTONIX [Concomitant]
     Route: 048
  4. YASMIN [Suspect]
     Indication: PREMENSTRUAL SYNDROME

REACTIONS (9)
  - GALLBLADDER DISORDER [None]
  - ANHEDONIA [None]
  - GENERAL PHYSICAL HEALTH DETERIORATION [None]
  - CHOLECYSTITIS [None]
  - ANXIETY [None]
  - GASTROINTESTINAL DISORDER [None]
  - EMOTIONAL DISTRESS [None]
  - ABDOMINAL PAIN [None]
  - NAUSEA [None]
